FAERS Safety Report 8917891 (Version 1)
Quarter: 2012Q4

REPORT INFORMATION
  Report Type: 
  Country: US (occurrence: US)
  Receive Date: 20121120
  Receipt Date: 20121120
  Transmission Date: 20130627
  Serious: Yes (Hospitalization)
  Sender: FDA-Public Use
  Company Number: US-GILEAD-2012-0064961

PATIENT
  Age: 56 Year
  Sex: Female

DRUGS (4)
  1. LETAIRIS [Suspect]
     Indication: COR PULMONALE CHRONIC
     Dosage: 10 mg, QD
     Route: 048
     Dates: start: 20120224
  2. TYVASO [Concomitant]
  3. REVATIO [Concomitant]
  4. LASIX                              /00032601/ [Concomitant]

REACTIONS (3)
  - Syncope [Unknown]
  - Oedema [Unknown]
  - Arthralgia [Unknown]
